FAERS Safety Report 5836278-7 (Version None)
Quarter: 2008Q3

REPORT INFORMATION
  Report Type: 
  Country: None (occurrence: None)
  Receive Date: 20080807
  Receipt Date: 20080729
  Transmission Date: 20090109
  Serious: Yes (Hospitalization, Other)
  Sender: FDA-Public Use
  Company Number: DK-JNJFOC-20080701710

PATIENT
  Sex: Female
  Weight: 69.8 kg

DRUGS (4)
  1. REMICADE [Suspect]
     Indication: RHEUMATOID ARTHRITIS
     Dosage: 2ND OR THIRD DOSE
     Route: 042
  2. METHOTREXATE [Concomitant]
  3. SALAZOPYRIN [Concomitant]
  4. PREDNISOLONE [Concomitant]

REACTIONS (4)
  - C-REACTIVE PROTEIN INCREASED [None]
  - INFLUENZA LIKE ILLNESS [None]
  - PAIN [None]
  - SERUM SICKNESS [None]
